FAERS Safety Report 8607316-3 (Version None)
Quarter: 2012Q3

REPORT INFORMATION
  Report Type: 
  Country: None (occurrence: None)
  Receive Date: 20120807
  Receipt Date: 20120725
  Transmission Date: 20120928
  Serious: Yes (Death)
  Sender: FDA-Public Use
  Company Number: 2012EK000011

PATIENT

DRUGS (1)
  1. CARDENE [Suspect]
     Indication: PREMATURE LABOUR
     Dosage: 1 MG;QH;TRPL
     Route: 064

REACTIONS (2)
  - MATERNAL DRUGS AFFECTING FOETUS [None]
  - DEATH NEONATAL [None]
